FAERS Safety Report 4895072-4 (Version None)
Quarter: 2006Q1

REPORT INFORMATION
  Report Type: 
  Country: None (occurrence: None)
  Receive Date: 20060130
  Receipt Date: 20060118
  Transmission Date: 20060701
  Serious: Yes (Other)
  Sender: FDA-Public Use
  Company Number: BR-BRISTOL-MYERS SQUIBB COMPANY-13256201

PATIENT
  Age: 56 Year
  Sex: Male

DRUGS (6)
  1. DIDANOSINE [Suspect]
  2. ATAZANAVIR [Suspect]
  3. TENOFOVIR [Suspect]
  4. RITONAVIR [Suspect]
  5. RIFABUTIN [Suspect]
  6. ENFUVIRTIDE [Suspect]

REACTIONS (1)
  - CORNEAL DEPOSITS [None]
